FAERS Safety Report 6975856-9 (Version None)
Quarter: 2010Q3

REPORT INFORMATION
  Report Type: 
  Country: None (occurrence: None)
  Receive Date: 20100910
  Receipt Date: 20100830
  Transmission Date: 20110219
  Serious: Yes (Hospitalization, Disabling, Other)
  Sender: FDA-Public Use
  Company Number: US-ELI_LILLY_AND_COMPANY-US201008000420

PATIENT
  Sex: Male
  Weight: 94.331 kg

DRUGS (8)
  1. ZYPREXA [Suspect]
     Indication: BIPOLAR DISORDER
     Dosage: 20 MG, DAILY (1/D)
     Route: 065
     Dates: start: 20070823, end: 20100706
  2. FLUOXETINE HYDROCHLORIDE [Concomitant]
     Indication: MOOD ALTERED
     Dosage: 20 MG, DAILY (1/D)
     Route: 065
  3. CLONAZEPAM [Concomitant]
     Indication: ANXIETY
     Dosage: 1 MG, AS NEEDED
  4. MIDRIN [Concomitant]
     Indication: HEADACHE
     Dosage: UNK, AS NEEDED
  5. ETHANOL [Concomitant]
  6. METHAMPHETAMINE [Concomitant]
  7. CANNABIS [Concomitant]
  8. AMPHETAMINE AND DEXTROAMPHETAMINE SALTS [Concomitant]

REACTIONS (8)
  - DECREASED APPETITE [None]
  - DEHYDRATION [None]
  - HEAT STROKE [None]
  - HYPERTHERMIA MALIGNANT [None]
  - LIVER INJURY [None]
  - LOSS OF CONSCIOUSNESS [None]
  - RHABDOMYOLYSIS [None]
  - SUPRAVENTRICULAR TACHYCARDIA [None]
